FAERS Safety Report 6264809-4 (Version None)
Quarter: 2009Q3

REPORT INFORMATION
  Report Type: 
  Country: None (occurrence: None)
  Receive Date: 20090710
  Receipt Date: 20090702
  Transmission Date: 20100115
  Serious: Yes (Hospitalization)
  Sender: FDA-Public Use
  Company Number: US-GENENTECH-286444

PATIENT
  Sex: Male

DRUGS (4)
  1. BEVACIZUMAB [Suspect]
     Indication: PROSTATE CANCER
     Dosage: 15 MG/KG, UNK
     Route: 042
     Dates: start: 20050919
  2. DOCETAXEL [Suspect]
     Indication: PROSTATE CANCER
     Dosage: 75 MG/M2, UNK
     Route: 042
     Dates: start: 20050919
  3. PREDNISONE TAB [Suspect]
     Indication: PROSTATE CANCER
     Dosage: 5 MG, BID
     Route: 048
     Dates: start: 20050919
  4. DEXAMETHASONE TAB [Concomitant]
     Indication: PROSTATE CANCER
     Dosage: 8 MG, UNK
     Route: 048
     Dates: start: 20050919

REACTIONS (2)
  - FEMORAL NECK FRACTURE [None]
  - FRACTURE [None]
